FAERS Safety Report 20798874 (Version 3)
Quarter: 2024Q1

REPORT INFORMATION
  Report Type: Report from Study
  Country: MX (occurrence: MX)
  Receive Date: 20220507
  Receipt Date: 20240215
  Transmission Date: 20240409
  Serious: Yes (Other)
  Sender: FDA-Public Use
  Company Number: MX-NOVARTISPH-NVSC2021MX092477

PATIENT
  Sex: Male
  Weight: 55 kg

DRUGS (3)
  1. GILENYA [Suspect]
     Active Substance: FINGOLIMOD HYDROCHLORIDE
     Indication: Multiple sclerosis
     Dosage: 0.5 MG, QD
     Route: 048
     Dates: start: 2020
  2. GILENYA [Suspect]
     Active Substance: FINGOLIMOD HYDROCHLORIDE
     Dosage: 0.5 MG, QD
     Route: 048
     Dates: start: 20210118, end: 20220222
  3. GILENYA [Suspect]
     Active Substance: FINGOLIMOD HYDROCHLORIDE
     Dosage: 0.5 MG, QD
     Route: 048
     Dates: start: 20220501

REACTIONS (13)
  - Facial paralysis [Not Recovered/Not Resolved]
  - Pain in extremity [Recovered/Resolved]
  - Pain in extremity [Not Recovered/Not Resolved]
  - Feeling abnormal [Recovering/Resolving]
  - Muscular weakness [Unknown]
  - Headache [Recovered/Resolved]
  - Muscle spasms [Not Recovered/Not Resolved]
  - Ligament sprain [Unknown]
  - Depressed mood [Unknown]
  - Weight decreased [Not Recovered/Not Resolved]
  - Pain [Unknown]
  - Weight gain poor [Unknown]
  - Product supply issue [Unknown]

NARRATIVE: CASE EVENT DATE: 20200101
